FAERS Safety Report 12960408 (Version 3)
Quarter: 2016Q4

REPORT INFORMATION
  Report Type: Spontaneous
  Country: US (occurrence: US)
  Receive Date: 20161121
  Receipt Date: 20161206
  Transmission Date: 20170207
  Serious: No
  Sender: FDA-Public Use
  Company Number: US-MALLINCKRODT-T201602169

PATIENT
  Sex: Male
  Weight: 145 kg

DRUGS (2)
  1. FENTANYL CITRATE. [Suspect]
     Active Substance: FENTANYL CITRATE
     Indication: PAIN
     Dosage: 1600 MCG, ONE QID
     Route: 048
     Dates: start: 2002
  2. OXYCODONE [Concomitant]
     Active Substance: OXYCODONE
     Dosage: 40 MG

REACTIONS (1)
  - Off label use [Not Recovered/Not Resolved]
